FAERS Safety Report 20237355 (Version 1)
Quarter: 2021Q4

REPORT INFORMATION
  Report Type: Spontaneous
  Country: US (occurrence: None)
  Receive Date: 20211227
  Receipt Date: 20211227
  Transmission Date: 20220303
  Serious: No
  Sender: FDA-Public Use
  Company Number: None

PATIENT
  Age: 67 Year
  Sex: Female
  Weight: 67.5 kg

DRUGS (10)
  1. NP THYROID [Suspect]
     Active Substance: LEVOTHYROXINE\LIOTHYRONINE
     Indication: Hypothyroidism
     Dosage: OTHER QUANTITY : 1 TABLET(S);?
     Route: 048
     Dates: start: 20211115, end: 20211226
  2. ARMOUR THYROID [Concomitant]
     Active Substance: THYROID, PORCINE
  3. VITAMIN D3 [Concomitant]
     Active Substance: CHOLECALCIFEROL
  4. VITAMIN C [Concomitant]
     Active Substance: ASCORBIC ACID
  5. VITAMIN B COMPLEX [Concomitant]
     Active Substance: CYANOCOBALAMIN\DEXPANTHENOL\NIACINAMIDE\PYRIDOXINE HYDROCHLORIDE\RIBOFLAVIN 5^-PHOSPHATE SODIUM\THIA
  6. OMEGA 3 [Concomitant]
     Active Substance: CAPSAICIN
  7. GLUTATHIONE [Concomitant]
     Active Substance: GLUTATHIONE
  8. BIOSIL [Concomitant]
  9. DIMETHYL SULFONE [Concomitant]
     Active Substance: DIMETHYL SULFONE
  10. VITAMIN B6 [Concomitant]
     Active Substance: PYRIDOXINE HYDROCHLORIDE

REACTIONS (7)
  - Product substitution issue [None]
  - Weight increased [None]
  - Mood altered [None]
  - Nail disorder [None]
  - Dry skin [None]
  - Recalled product administered [None]
  - Product measured potency issue [None]

NARRATIVE: CASE EVENT DATE: 20211115
